FAERS Safety Report 8455823-9 (Version None)
Quarter: 2012Q2

REPORT INFORMATION
  Report Type: 
  Country: None (occurrence: None)
  Receive Date: 20120323
  Receipt Date: 20111111
  Transmission Date: 20120825
  Serious: Yes (Other)
  Sender: FDA-Public Use
  Company Number: 163-21880-11092291

PATIENT
  Age: 71 Year
  Sex: Female

DRUGS (13)
  1. REVLIMID [Suspect]
     Indication: MULTIPLE MYELOMA
     Dosage: 15 MG, 1 IN 1 D, PO : 10 MG, QD X14, PO
     Route: 048
     Dates: start: 20110506
  2. REVLIMID [Suspect]
     Indication: MULTIPLE MYELOMA
     Dosage: 15 MG, 1 IN 1 D, PO : 10 MG, QD X14, PO
     Route: 048
     Dates: start: 20110701, end: 20110727
  3. VELCADE [Concomitant]
  4. DECADRON [Concomitant]
  5. ACYCLOVIR [Concomitant]
  6. GLUCOTROL XL [Concomitant]
  7. FOLIC ACID [Concomitant]
  8. FLUID (BARIUM SULFATE) [Concomitant]
  9. LEVOXYL [Concomitant]
  10. CALCIUM PLUS VITAMIN D (CALCIUM D3 ^STADA^) [Concomitant]
  11. GLUCOPHAGE [Concomitant]
  12. CYMBALTA [Concomitant]
  13. PAMIDRONATE DISODIUM [Concomitant]

REACTIONS (1)
  - DIARRHOEA [None]
